FAERS Safety Report 5977349-4 (Version None)
Quarter: 2008Q4

REPORT INFORMATION
  Report Type: 
  Country: None (occurrence: None)
  Receive Date: 20081203
  Receipt Date: 20081125
  Transmission Date: 20090506
  Serious: Yes (Other)
  Sender: FDA-Public Use
  Company Number: PHBS2008GB06465

PATIENT
  Age: 55 Year
  Sex: Male

DRUGS (1)
  1. CYCLOSPORINE [Suspect]
     Indication: STEM CELL TRANSPLANT

REACTIONS (4)
  - EOSINOPHILIC PUSTULAR FOLLICULITIS [None]
  - PRURITUS [None]
  - RASH [None]
  - URTICARIA PAPULAR [None]
